FAERS Safety Report 11079897 (Version 1)
Quarter: 2015Q2

REPORT INFORMATION
  Report Type: Spontaneous
  Country: CN (occurrence: CN)
  Receive Date: 20150430
  Receipt Date: 20150430
  Transmission Date: 20150821
  Serious: Yes (Death)
  Sender: FDA-Public Use
  Company Number: CN-CIPLA LTD.-2015CN03407

PATIENT

DRUGS (4)
  1. RECOMBINANT MUTATED HUMAN TUMOR NECROSIS FACTOR (RMHTNF) [Suspect]
     Active Substance: INVESTIGATIONAL PRODUCT
     Indication: NON-SMALL CELL LUNG CANCER
     Dosage: 4 X 10^6 UNITS M2/DAY ON DAYS 1-7 AND DAYS 11-17 OF EACH CYCLE FOR FOUR CYCLES
     Route: 030
  2. CISPLATIN. [Suspect]
     Active Substance: CISPLATIN
     Indication: NON-SMALL CELL LUNG CANCER
     Dosage: 75 MG/M2 ON DAY 1 OF A 3 WEEK CYCLE FOR FOUR CYCLES
     Route: 042
  3. CARBOPLATIN. [Suspect]
     Active Substance: CARBOPLATIN
     Indication: NON-SMALL CELL LUNG CANCER
     Dosage: 5 AUC ON DAY 1 OF A 3 WEEK CYCLE FOR FOUR CYCLES
     Route: 042
  4. DOCETAXEL. [Suspect]
     Active Substance: DOCETAXEL
     Indication: NON-SMALL CELL LUNG CANCER
     Dosage: 75 MG/M2 ON DAY 1 OF A 3 WEEK CYCLE FOR FOUR CYCLES
     Route: 042

REACTIONS (1)
  - Myocardial infarction [Fatal]
